FAERS Safety Report 10210450 (Version 1)
Quarter: 2014Q2

REPORT INFORMATION
  Report Type: Spontaneous
  Country: HU (occurrence: None)
  Receive Date: 20140528
  Receipt Date: 20140528
  Transmission Date: 20141212
  Serious: Yes (Hospitalization)
  Sender: FDA-Public Use
  Company Number: NSR_01549_2014

PATIENT
  Age: 71 Year
  Sex: Female

DRUGS (1)
  1. ALLOPURINOL [Suspect]
     Indication: HYPERURICAEMIA
     Dosage: FREQUENCY UNKNOWN

REACTIONS (2)
  - Nephrosclerosis [None]
  - Drug reaction with eosinophilia and systemic symptoms [None]
